FAERS Safety Report 9244372 (Version 2)
Quarter: 2013Q2

REPORT INFORMATION
  Report Type: Spontaneous
  Country: US (occurrence: US)
  Receive Date: 20130419
  Receipt Date: 20130515
  Transmission Date: 20140414
  Serious: Yes (Other)
  Sender: FDA-Public Use
  Company Number: US-RB-052339-13

PATIENT
  Age: 35 Year
  Sex: Female

DRUGS (9)
  1. BUPRENORPHINE GENERIC [Suspect]
     Indication: DRUG DEPENDENCE
     Route: 060
     Dates: start: 201112, end: 201210
  2. BUPRENORPHINE GENERIC [Suspect]
     Dosage: TAPERED DOSES
     Route: 060
     Dates: start: 201210
  3. BUPRENORPHINE GENERIC [Suspect]
     Dosage: DOWN TO 0.5 MG NOW
     Route: 065
  4. SUBOXONE FILM [Suspect]
     Indication: DRUG DEPENDENCE
     Dosage: SUBOXONE FILM
     Route: 060
     Dates: start: 2010, end: 201112
  5. PRENATAL VITAMINS [Concomitant]
     Indication: PREGNANCY
     Dosage: ONE DAILY
     Route: 048
     Dates: start: 201112, end: 20120820
  6. CIGARETTE [Concomitant]
     Indication: NICOTINE DEPENDENCE
     Dosage: ONE PACK DAILY
     Route: 055
  7. XANAX [Concomitant]
     Indication: ANXIETY
     Dosage: AS NEEDED AT BED TIME
     Route: 065
     Dates: start: 2010
  8. XANAX [Concomitant]
     Indication: SLEEP DISORDER
     Dosage: AS NEEDED AT BED TIME
     Route: 065
     Dates: start: 2010
  9. BENADRYL [Concomitant]
     Indication: SEASONAL ALLERGY
     Dosage: 25 AND 50 MG AS NEEDED
     Route: 065
     Dates: start: 201206

REACTIONS (10)
  - Exposure during pregnancy [Recovered/Resolved]
  - Convulsion [Recovered/Resolved]
  - Loss of consciousness [Recovered/Resolved]
  - Urinary incontinence [Recovered/Resolved]
  - Tongue biting [Recovered/Resolved]
  - Tooth loss [Recovered/Resolved]
  - Vaginal haemorrhage [Recovered/Resolved]
  - Suppressed lactation [Recovered/Resolved]
  - Drug withdrawal syndrome [Not Recovered/Not Resolved]
  - Wrong technique in drug usage process [Not Recovered/Not Resolved]
